FAERS Safety Report 16701987 (Version 1)
Quarter: 2019Q3

REPORT INFORMATION
  Report Type: Spontaneous
  Country: FR (occurrence: FR)
  Receive Date: 20190814
  Receipt Date: 20190814
  Transmission Date: 20191004
  Serious: Yes (Other)
  Sender: FDA-Public Use
  Company Number: FR-ROCHE-2376507

PATIENT
  Age: 75 Year
  Sex: Female

DRUGS (12)
  1. ROACTEMRA [Suspect]
     Active Substance: TOCILIZUMAB
     Indication: RHEUMATOID ARTHRITIS
     Dosage: ON 20/JUN/2019, RECEIVED MOST RECENT DOSE OF TOCILIZUMAB
     Route: 042
     Dates: start: 2011
  2. CALCIFEDIOL [Concomitant]
     Active Substance: CALCIFEDIOL
  3. KARDEGIC [Concomitant]
     Active Substance: ASPIRIN DL-LYSINE
  4. HUMIRA [Suspect]
     Active Substance: ADALIMUMAB
     Indication: RHEUMATOID ARTHRITIS
     Route: 065
     Dates: start: 2010, end: 2011
  5. ENBREL [Suspect]
     Active Substance: ETANERCEPT
     Indication: RHEUMATOID ARTHRITIS
     Dosage: IN //2010, RECEIVED MOST RECENT DOSE OF ENBREL
     Route: 065
     Dates: start: 2006
  6. OROCAL [CALCIUM CARBONATE] [Concomitant]
  7. JANUVIA [Concomitant]
     Active Substance: SITAGLIPTIN PHOSPHATE
  8. METFORMIN [Concomitant]
     Active Substance: METFORMIN HYDROCHLORIDE
     Route: 065
  9. SITAGLIPTINE [Concomitant]
     Active Substance: SITAGLIPTIN
  10. METHOTREXATE. [Suspect]
     Active Substance: METHOTREXATE
     Indication: RHEUMATOID ARTHRITIS
     Dosage: INCONNUE
     Route: 065
     Dates: start: 1999, end: 2006
  11. METHOTREXATE. [Suspect]
     Active Substance: METHOTREXATE
     Indication: RHEUMATOID ARTHRITIS
     Dosage: INCONNUE
     Route: 065
     Dates: start: 2011, end: 20181118
  12. SPECIAFOLDINE [Concomitant]
     Active Substance: FOLIC ACID

REACTIONS (1)
  - Acute myeloid leukaemia [Not Recovered/Not Resolved]

NARRATIVE: CASE EVENT DATE: 20190613
